FAERS Safety Report 7101905-3 (Version None)
Quarter: 2010Q4

REPORT INFORMATION
  Report Type: 
  Country: None (occurrence: None)
  Receive Date: 20101115
  Receipt Date: 20090519
  Transmission Date: 20110411
  Serious: No
  Sender: FDA-Public Use
  Company Number: US-KINGPHARMUSA00001-K200900605

PATIENT
  Sex: Male

DRUGS (6)
  1. AVINZA [Suspect]
     Dosage: UNK
     Route: 048
     Dates: end: 20090425
  2. ANDROGEL [Suspect]
     Indication: BLOOD TESTOSTERONE DECREASED
     Dosage: 3.75 MG, QD
     Dates: start: 20090101, end: 20090301
  3. ANDROGEL [Suspect]
     Dosage: 2.5 G, QD
     Dates: start: 20090301
  4. PROVIGIL [Concomitant]
     Dosage: 200 MG, QD
  5. PANLOR DC [Concomitant]
     Dosage: UNK
     Route: 048
  6. ASACOL [Concomitant]
     Dosage: UNK

REACTIONS (3)
  - BLOOD TESTOSTERONE INCREASED [None]
  - FEELING ABNORMAL [None]
  - NIGHT SWEATS [None]
